FAERS Safety Report 19084219 (Version 1)
Quarter: 2021Q2

REPORT INFORMATION
  Report Type: Spontaneous
  Country: US (occurrence: US)
  Receive Date: 20210401
  Receipt Date: 20210401
  Transmission Date: 20210717
  Serious: Yes (Other)
  Sender: FDA-Public Use
  Company Number: US-BAYER-2021-112319

PATIENT
  Age: 72 Year
  Sex: Female

DRUGS (2)
  1. CORICIDIN HBP MAXIMUM STRENGTH COLD, COUGH AND FLU [Suspect]
     Active Substance: ACETAMINOPHEN\DEXTROMETHORPHAN HYDROBROMIDE\GUAIFENESIN
     Indication: HYPERSENSITIVITY
  2. CORICIDIN HBP MAXIMUM STRENGTH COLD, COUGH AND FLU [Suspect]
     Active Substance: ACETAMINOPHEN\DEXTROMETHORPHAN HYDROBROMIDE\GUAIFENESIN
     Indication: NASOPHARYNGITIS
     Dosage: 1 DF
     Route: 048
     Dates: start: 20210324, end: 20210324

REACTIONS (1)
  - Foreign body in throat [Recovered/Resolved]

NARRATIVE: CASE EVENT DATE: 20210324
